FAERS Safety Report 5052564-5 (Version None)
Quarter: 2006Q3

REPORT INFORMATION
  Report Type: 
  Country: None (occurrence: None)
  Receive Date: 20060717
  Receipt Date: 20060710
  Transmission Date: 20061208
  Serious: Yes (Other)
  Sender: FDA-Public Use
  Company Number: US-GLAXOSMITHKLINE-A0611631A

PATIENT
  Age: 79 Year
  Sex: Female

DRUGS (3)
  1. COREG [Suspect]
     Indication: HYPERTENSION
     Dosage: 6.25MG TWICE PER DAY
     Route: 048
     Dates: start: 20040101
  2. NORVASC [Concomitant]
  3. LORAZEPAM [Concomitant]

REACTIONS (5)
  - CATARACT [None]
  - FATIGUE [None]
  - GLOSSITIS [None]
  - GLOSSODYNIA [None]
  - TONGUE DISORDER [None]
